FAERS Safety Report 6920761-7 (Version None)
Quarter: 2010Q3

REPORT INFORMATION
  Report Type: 
  Country: None (occurrence: None)
  Receive Date: 20100812
  Receipt Date: 20100803
  Transmission Date: 20110219
  Serious: Yes (Disabling)
  Sender: FDA-Public Use
  Company Number: US-JNJFOC-20090905391

PATIENT
  Sex: Female
  Weight: 58.97 kg

DRUGS (1)
  1. LEVAQUIN [Suspect]
     Indication: TOOTH INFECTION
     Route: 048
     Dates: start: 20090101

REACTIONS (3)
  - DISABILITY [None]
  - JOINT DESTRUCTION [None]
  - UNEVALUABLE EVENT [None]
